FAERS Safety Report 8800026 (Version 3)
Quarter: 2013Q1

REPORT INFORMATION
  Report Type: Spontaneous
  Country: FR (occurrence: FR)
  Receive Date: 20120921
  Receipt Date: 20130307
  Transmission Date: 20140127
  Serious: Yes (Other)
  Sender: FDA-Public Use
  Company Number: FR-ABBOTT-12P-056-0980958-00

PATIENT
  Age: 70 Year
  Sex: Female

DRUGS (9)
  1. ZECLAR [Suspect]
     Indication: PRODUCT USED FOR UNKNOWN INDICATION
     Route: 048
     Dates: start: 20120417, end: 20120425
  2. AROMASINE [Suspect]
     Indication: BREAST CANCER
     Route: 048
     Dates: start: 20111110, end: 20120430
  3. AROMASINE [Suspect]
  4. ACTONEL [Suspect]
     Indication: METASTASES TO BONE
     Route: 048
     Dates: start: 20111110, end: 20120430
  5. COTAREG [Concomitant]
     Indication: HYPERTENSION
     Dosage: 80/12.5 MG DAILY
     Route: 048
  6. OMEPRAZOLE [Concomitant]
     Indication: PRODUCT USED FOR UNKNOWN INDICATION
     Route: 048
  7. FOOD COMPLEMET (OXYTONIC) [Concomitant]
     Indication: PRODUCT USED FOR UNKNOWN INDICATION
  8. CACIT D3 [Concomitant]
     Indication: PRODUCT USED FOR UNKNOWN INDICATION
  9. AMOXICILLIN NOS [Concomitant]
     Indication: PRODUCT USED FOR UNKNOWN INDICATION
     Dates: start: 20120410, end: 20120426

REACTIONS (1)
  - Hepatitis [Recovering/Resolving]
